FAERS Safety Report 15265682 (Version 1)
Quarter: 2018Q3

REPORT INFORMATION
  Report Type: Spontaneous
  Country: NL (occurrence: NL)
  Receive Date: 20180810
  Receipt Date: 20180810
  Transmission Date: 20181010
  Serious: Yes (Hospitalization)
  Sender: FDA-Public Use
  Company Number: NL-LPDUSPRD-20181430

PATIENT
  Age: 35 Year
  Sex: Female
  Weight: 83 kg

DRUGS (1)
  1. FERINJECT [Suspect]
     Active Substance: FERRIC CARBOXYMALTOSE
     Dosage: 1000 MG
     Route: 041
     Dates: start: 20180719, end: 20180719

REACTIONS (2)
  - Exposure during pregnancy [Unknown]
  - Infusion site reaction [Recovered/Resolved]

NARRATIVE: CASE EVENT DATE: 20180719
